FAERS Safety Report 7755880-9 (Version None)
Quarter: 2011Q3

REPORT INFORMATION
  Report Type: 
  Country: None (occurrence: None)
  Receive Date: 20110916
  Receipt Date: 20081009
  Transmission Date: 20111222
  Serious: No
  Sender: FDA-Public Use
  Company Number: US-BAYER-200836135NA

PATIENT
  Sex: Female

DRUGS (1)
  1. MIRENA [Suspect]
     Indication: PRODUCT USED FOR UNKNOWN INDICATION
     Dosage: 20 MCG/24HR, CONT
     Route: 015
     Dates: start: 20080801

REACTIONS (4)
  - METRORRHAGIA [None]
  - MENSTRUAL DISORDER [None]
  - GENITAL HAEMORRHAGE [None]
  - HYPOMENORRHOEA [None]
